FAERS Safety Report 6069482-6 (Version None)
Quarter: 2009Q1

REPORT INFORMATION
  Report Type: 
  Country: None (occurrence: None)
  Receive Date: 20090121
  Receipt Date: 20080327
  Transmission Date: 20090719
  Serious: Yes (Hospitalization, Other)
  Sender: FDA-Public Use
  Company Number: HQWYE574101AUG03

PATIENT
  Age: 61 Year
  Sex: Female

DRUGS (1)
  1. PREMPRO [Suspect]
     Indication: HORMONE REPLACEMENT THERAPY
     Dosage: 0.625MG/UNSPECIFIED EVERY DAY, ORAL ; FOR SEVERAL YEARS
     Route: 048

REACTIONS (1)
  - BREAST CANCER FEMALE [None]
